FAERS Safety Report 21830020 (Version 2)
Quarter: 2023Q1

REPORT INFORMATION
  Report Type: Spontaneous
  Country: CA (occurrence: CA)
  Receive Date: 20230106
  Receipt Date: 20230224
  Transmission Date: 20230417
  Serious: Yes (Hospitalization)
  Sender: FDA-Public Use
  Company Number: CA-TEVA-2023-CA-2842645

PATIENT
  Age: 26 Year
  Sex: Female
  Weight: 67 kg

DRUGS (3)
  1. PREDNISONE [Suspect]
     Active Substance: PREDNISONE
     Indication: Product used for unknown indication
     Dosage: X 8 SEM
     Route: 065
     Dates: start: 2021
  2. DEFLAZACORT [Suspect]
     Active Substance: DEFLAZACORT
     Indication: Product used for unknown indication
     Route: 065
     Dates: start: 2021
  3. DEFLAZACORT [Suspect]
     Active Substance: DEFLAZACORT
     Route: 065
     Dates: start: 202212

REACTIONS (6)
  - Mucous stools [Unknown]
  - Haematochezia [Unknown]
  - Diarrhoea [Unknown]
  - Abdominal pain [Unknown]
  - Fatigue [Unknown]
  - Therapeutic product effect incomplete [Unknown]
